FAERS Safety Report 10641877 (Version 2)
Quarter: 2014Q4

REPORT INFORMATION
  Report Type: Report from Study
  Country: US (occurrence: US)
  Receive Date: 20141209
  Receipt Date: 20141217
  Transmission Date: 20150529
  Serious: Yes (Hospitalization)
  Sender: FDA-Public Use
  Company Number: US-ACTELION-A-US2014-109275

PATIENT
  Age: 71 Year
  Sex: Female

DRUGS (5)
  1. RIOCIGUAT [Concomitant]
     Active Substance: RIOCIGUAT
  2. LAMOTRIGINE. [Suspect]
     Active Substance: LAMOTRIGINE
     Indication: PRODUCT USED FOR UNKNOWN INDICATION
     Route: 048
  3. OXYGEN. [Concomitant]
     Active Substance: OXYGEN
  4. COUMADIN [Concomitant]
     Active Substance: WARFARIN SODIUM
  5. MACITENTAN [Suspect]
     Active Substance: MACITENTAN
     Indication: COR PULMONALE CHRONIC
     Dosage: 10 MG, UNK
     Route: 048

REACTIONS (4)
  - Syncope [Unknown]
  - Fall [Unknown]
  - Neck injury [Unknown]
  - Head injury [Unknown]
